FAERS Safety Report 8357094-0 (Version None)
Quarter: 2012Q2

REPORT INFORMATION
  Report Type: 
  Country: None (occurrence: None)
  Receive Date: 20120514
  Receipt Date: 20120503
  Transmission Date: 20120825
  Serious: Yes (Death, Hospitalization, Other)
  Sender: FDA-Public Use
  Company Number: FR-CELGENEUS-056-50794-12040716

PATIENT
  Sex: Male
  Weight: 80 kg

DRUGS (10)
  1. ACETAMINOPHEN [Concomitant]
     Route: 065
  2. LERCANIDIPINE [Concomitant]
     Route: 065
  3. VIDAZA [Suspect]
  4. VIDAZA [Suspect]
     Dosage: 124 MILLIGRAM
     Dates: start: 20120402, end: 20120406
  5. METFORMIN HCL [Concomitant]
     Route: 065
  6. NEXIUM [Concomitant]
     Route: 065
  7. ALDACTONE [Concomitant]
     Route: 065
  8. FORZA [Concomitant]
     Route: 065
  9. ASPIRIN [Concomitant]
     Route: 065
  10. LOSARTAN POTASSIUM AND HYDROCHLOROTHIAZIDE [Concomitant]
     Route: 065

REACTIONS (5)
  - HYPERURICAEMIA [None]
  - DYSPNOEA [None]
  - MUSCULAR WEAKNESS [None]
  - NEUTROPHIL COUNT DECREASED [None]
  - MYALGIA [None]
